FAERS Safety Report 10381795 (Version 2)
Quarter: 2014Q3

REPORT INFORMATION
  Report Type: Spontaneous
  Country: CN (occurrence: CN)
  Receive Date: 20140813
  Receipt Date: 20140813
  Transmission Date: 20150326
  Serious: Yes (Other)
  Sender: FDA-Public Use
  Company Number: CN-BAYER-2014-105059

PATIENT
  Age: 67 Year
  Sex: Male

DRUGS (1)
  1. LEVITRA [Suspect]
     Active Substance: VARDENAFIL HYDROCHLORIDE TRIHYDRATE
     Indication: SEXUAL DYSFUNCTION
     Dosage: 20MG OR 10MG ONCE OR TWICE A MONTH, CONTINUED FOR ABOUT ONE YEAR
     Route: 048
     Dates: start: 2013

REACTIONS (11)
  - Palpitations [Not Recovered/Not Resolved]
  - Tachyarrhythmia [None]
  - Chest discomfort [None]
  - Angina pectoris [None]
  - Chest pain [None]
  - Cardiac discomfort [None]
  - Heart injury [None]
  - Heart rate irregular [Not Recovered/Not Resolved]
  - Arrhythmia [Not Recovered/Not Resolved]
  - Bradycardia [None]
  - Bradycardia [Not Recovered/Not Resolved]
